FAERS Safety Report 4902882-3 (Version None)
Quarter: 2006Q1

REPORT INFORMATION
  Report Type: 
  Country: None (occurrence: None)
  Receive Date: 20060207
  Receipt Date: 20000911
  Transmission Date: 20060701
  Serious: Yes (Other)
  Sender: FDA-Public Use
  Company Number: UG-2000-BP-01682

PATIENT
  Sex: Male
  Weight: 3.64 kg

DRUGS (4)
  1. VIRAMUNE [Suspect]
     Indication: ACQUIRED IMMUNODEFICIENCY SYNDROME
     Route: 015
     Dates: start: 20000817, end: 20000817
  2. ZIDOVUDINE [Concomitant]
     Indication: HIV INFECTION
     Route: 015
     Dates: start: 20000801
  3. OXYGEN [Concomitant]
     Route: 055
     Dates: start: 20000817, end: 20000818
  4. TICE BCG [Concomitant]
     Indication: IMMUNISATION
     Route: 023
     Dates: start: 20000818, end: 20000818

REACTIONS (9)
  - ALPHA HAEMOLYTIC STREPTOCOCCAL INFECTION [None]
  - BACTERIAL SEPSIS [None]
  - DRUG EXPOSURE DURING PREGNANCY [None]
  - HYPOGLYCAEMIA NEONATAL [None]
  - MENINGITIS [None]
  - MENINGITIS NEONATAL [None]
  - POOR SUCKING REFLEX [None]
  - SEPSIS NEONATAL [None]
  - STAPHYLOCOCCAL INFECTION [None]
